FAERS Safety Report 5070273-3 (Version None)
Quarter: 2006Q3

REPORT INFORMATION
  Report Type: 
  Country: None (occurrence: None)
  Receive Date: 20060714
  Receipt Date: 20060412
  Transmission Date: 20061208
  Serious: No
  Sender: FDA-Public Use
  Company Number: 2006SP001654

PATIENT
  Age: 21 Year
  Sex: Male
  Weight: 68.0396 kg

DRUGS (3)
  1. LUNESTA [Suspect]
     Indication: INSOMNIA
     Dosage: 3 MG;1X;ORAL
     Route: 048
     Dates: start: 20060411, end: 20060411
  2. AMBIEN [Concomitant]
  3. CELEXA [Concomitant]

REACTIONS (1)
  - DYSGEUSIA [None]
